FAERS Safety Report 8726910 (Version 2)
Quarter: 2015Q2

REPORT INFORMATION
  Report Type: Report from Study
  Country: US (occurrence: US)
  Receive Date: 20120816
  Receipt Date: 20150625
  Transmission Date: 20150821
  Serious: Yes (Hospitalization)
  Sender: FDA-Public Use
  Company Number: US-ROCHE-1100605

PATIENT
  Age: 59 Year
  Sex: Female

DRUGS (10)
  1. MORPHINE SULFATE. [Concomitant]
     Active Substance: MORPHINE SULFATE
     Dosage: 3-5 MG
     Route: 065
  2. DYAZIDE [Concomitant]
     Active Substance: HYDROCHLOROTHIAZIDE\TRIAMTERENE
  3. TENORMIN [Concomitant]
     Active Substance: ATENOLOL
     Route: 065
  4. ACTIVASE [Suspect]
     Active Substance: ALTEPLASE
     Indication: ACUTE MYOCARDIAL INFARCTION
     Dosage: FOLLOW BY 50MG/HR DRIP FOR 1 HOUR
     Route: 040
  5. NITROGLYCERIN. [Concomitant]
     Active Substance: NITROGLYCERIN
     Route: 065
  6. LIDOCAIN [Concomitant]
     Active Substance: LIDOCAINE
     Indication: VENTRICULAR ARRHYTHMIA
     Route: 065
  7. XANAX [Concomitant]
     Active Substance: ALPRAZOLAM
     Route: 065
  8. HEPARIN [Concomitant]
     Active Substance: HEPARIN SODIUM
     Dosage: AFTER 1 HOUR OF TPA
     Route: 040
  9. PROCAN SR [Concomitant]
     Route: 065
  10. ASPIRIN. [Concomitant]
     Active Substance: ASPIRIN
     Route: 065

REACTIONS (2)
  - Respiratory tract infection [Unknown]
  - Leukocytosis [Unknown]
